FAERS Safety Report 8292756-5 (Version None)
Quarter: 2012Q2

REPORT INFORMATION
  Report Type: 
  Country: None (occurrence: None)
  Receive Date: 20120417
  Receipt Date: 20110907
  Transmission Date: 20120825
  Serious: No
  Sender: FDA-Public Use
  Company Number: US-ASTRAZENECA-2011SE54056

PATIENT
  Age: 35 Year
  Sex: Male

DRUGS (3)
  1. PREVACID [Concomitant]
  2. DEXILANT [Concomitant]
  3. NEXIUM [Suspect]
     Dosage: 2 PER DAY
     Route: 048

REACTIONS (3)
  - DRUG INEFFECTIVE [None]
  - BARRETT'S OESOPHAGUS [None]
  - ABDOMINAL DISCOMFORT [None]
